FAERS Safety Report 10668601 (Version 2)
Quarter: 2015Q1

REPORT INFORMATION
  Report Type: Spontaneous
  Country: US (occurrence: US)
  Receive Date: 20141222
  Receipt Date: 20150104
  Transmission Date: 20150720
  Serious: No
  Sender: FDA-Public Use
  Company Number: US-009507513-1412USA007252

PATIENT
  Age: 91 Year
  Sex: Female

DRUGS (2)
  1. NASONEX [Suspect]
     Active Substance: MOMETASONE FUROATE
     Dosage: UNK
     Route: 045
  2. NASONEX [Suspect]
     Active Substance: MOMETASONE FUROATE
     Dosage: INADVERTENTLY SPRAYED NASONEX IN HER EYE
     Route: 047
     Dates: start: 20141212, end: 20141212

REACTIONS (3)
  - Accidental exposure to product [Unknown]
  - Eye irritation [Recovered/Resolved]
  - Expired product administered [Unknown]

NARRATIVE: CASE EVENT DATE: 20141212
